FAERS Safety Report 4310037-9 (Version None)
Quarter: 2004Q1

REPORT INFORMATION
  Report Type: 
  Country: None (occurrence: None)
  Receive Date: 20040303
  Receipt Date: 20040216
  Transmission Date: 20041129
  Serious: Yes (Disabling)
  Sender: FDA-Public Use
  Company Number: 200412138GDDC

PATIENT
  Age: 75 Year
  Sex: Male

DRUGS (13)
  1. EUGLUCON [Suspect]
     Indication: DIABETES MELLITUS
     Route: 048
  2. BACTRIM [Suspect]
     Indication: PNEUMOCYSTIS CARINII PNEUMONIA
     Route: 048
     Dates: start: 20040123, end: 20040128
  3. DIGOSIN [Suspect]
     Indication: ATRIAL FIBRILLATION
     Route: 042
     Dates: start: 20040115, end: 20040115
  4. CORTICOSTEROIDS [Suspect]
     Indication: DRUG USE FOR UNKNOWN INDICATION
     Dosage: DOSE: UNK
  5. NEOPHYLLIN [Suspect]
     Indication: DRUG USE FOR UNKNOWN INDICATION
     Route: 042
     Dates: start: 20040114, end: 20040121
  6. MODACIN [Suspect]
     Indication: DRUG USE FOR UNKNOWN INDICATION
     Route: 042
     Dates: start: 20040114, end: 20040118
  7. CLINDAMYCIN HCL [Concomitant]
     Dosage: DOSE: UNK
     Dates: start: 20040119, end: 20040121
  8. CLARITH [Concomitant]
     Dosage: DOSE: UNK
     Dates: start: 20040122, end: 20040128
  9. MEROPEN [Concomitant]
     Dosage: DOSE: UNK
     Dates: start: 20040119, end: 20040126
  10. SOLU-MEDROL [Concomitant]
     Dosage: DOSE: UNK
     Dates: start: 20040114, end: 20040117
  11. VENOGLOBULIN [Concomitant]
     Dosage: DOSE: UNK
     Dates: start: 20040114, end: 20040118
  12. DIFLUCAN [Concomitant]
     Dosage: DOSE: UNK
     Dates: start: 20040120, end: 20040123
  13. GASTER [Concomitant]
     Dosage: DOSE: UNK
     Dates: start: 20040123, end: 20040128

REACTIONS (6)
  - BLOOD ALKALINE PHOSPHATASE INCREASED [None]
  - BLOOD LACTATE DEHYDROGENASE INCREASED [None]
  - DYSGEUSIA [None]
  - LYMPHOCYTE COUNT DECREASED [None]
  - NEUTROPHIL COUNT INCREASED [None]
  - PAROSMIA [None]
